FAERS Safety Report 11881069 (Version 1)
Quarter: 2015Q4

REPORT INFORMATION
  Report Type: Spontaneous
  Country: AU (occurrence: AU)
  Receive Date: 20151230
  Receipt Date: 20151230
  Transmission Date: 20160305
  Serious: Yes (Hospitalization, Other)
  Sender: FDA-Public Use
  Company Number: AU-BAXALTA-2015BLT003561

PATIENT
  Age: 35 Year
  Sex: Female

DRUGS (6)
  1. KIOVIG [Suspect]
     Active Substance: HUMAN IMMUNOGLOBULIN G
     Dosage: UNK
     Route: 042
     Dates: start: 20151218, end: 20151218
  2. KIOVIG [Suspect]
     Active Substance: HUMAN IMMUNOGLOBULIN G
     Indication: OFF LABEL USE
     Dosage: UNK
     Route: 042
     Dates: start: 20151218, end: 20151218
  3. KIOVIG [Suspect]
     Active Substance: HUMAN IMMUNOGLOBULIN G
     Dosage: UNK
     Route: 042
     Dates: start: 20151218, end: 20151218
  4. PHENERGAN [Suspect]
     Active Substance: PROMETHAZINE HYDROCHLORIDE
     Indication: RASH ERYTHEMATOUS
     Dosage: UNK
     Route: 065
     Dates: start: 20151218
  5. KIOVIG [Suspect]
     Active Substance: HUMAN IMMUNOGLOBULIN G
     Indication: MYASTHENIA GRAVIS
     Dosage: 35 G, UNK
     Route: 042
     Dates: start: 20151218, end: 20151218
  6. HYDROCORTISONE. [Suspect]
     Active Substance: HYDROCORTISONE
     Indication: RASH ERYTHEMATOUS
     Dosage: UNK
     Route: 065
     Dates: start: 20151218

REACTIONS (5)
  - Tachycardia [Recovered/Resolved]
  - Blood pressure abnormal [Recovered/Resolved]
  - Rash erythematous [Recovered/Resolved]
  - Flushing [Recovered/Resolved]
  - Chills [Recovered/Resolved]

NARRATIVE: CASE EVENT DATE: 20151218
